FAERS Safety Report 7683030-6 (Version None)
Quarter: 2011Q3

REPORT INFORMATION
  Report Type: 
  Country: None (occurrence: None)
  Receive Date: 20110812
  Receipt Date: 20110812
  Transmission Date: 20111222
  Serious: No
  Sender: FDA-Public Use
  Company Number: None

PATIENT
  Sex: Male

DRUGS (2)
  1. NASONEX [Suspect]
  2. FLUTICASONE PROPIONATE [Suspect]

REACTIONS (1)
  - HEADACHE [None]
